FAERS Safety Report 6330617-9 (Version None)
Quarter: 2009Q3

REPORT INFORMATION
  Report Type: 
  Country: None (occurrence: None)
  Receive Date: 20090827
  Receipt Date: 20090619
  Transmission Date: 20100115
  Serious: No
  Sender: FDA-Public Use
  Company Number: US-BAYER-200911375NA

PATIENT
  Sex: Female

DRUGS (2)
  1. YAZ [Suspect]
     Indication: DRUG USE FOR UNKNOWN INDICATION
     Route: 048
  2. UNIDENTIFIED OTC COLD MEDICINE [Concomitant]
     Indication: VIRAL INFECTION

REACTIONS (7)
  - ABNORMAL WITHDRAWAL BLEEDING [None]
  - GASTROENTERITIS VIRAL [None]
  - HYPOMENORRHOEA [None]
  - METRORRHAGIA [None]
  - NASOPHARYNGITIS [None]
  - VIRAL INFECTION [None]
  - VOMITING [None]
